FAERS Safety Report 13184564 (Version 1)
Quarter: 2017Q1

REPORT INFORMATION
  Report Type: Spontaneous
  Country: IN (occurrence: IN)
  Receive Date: 20170203
  Receipt Date: 20170203
  Transmission Date: 20170428
  Serious: Yes (Death, Other)
  Sender: FDA-Public Use
  Company Number: IN-BRISTOL-MYERS SQUIBB COMPANY-BMS-2017-007182

PATIENT
  Age: 38 Year
  Sex: Male

DRUGS (1)
  1. OPDYTA [Suspect]
     Active Substance: NIVOLUMAB
     Indication: LUNG ADENOCARCINOMA
     Dosage: 180 MG, Q2WK
     Route: 065

REACTIONS (8)
  - Septic shock [Fatal]
  - Pneumonitis [Unknown]
  - Diarrhoea [Unknown]
  - Febrile neutropenia [Unknown]
  - Pyrexia [Unknown]
  - Seizure [Recovering/Resolving]
  - Colitis [Unknown]
  - Thrombocytopenia [Unknown]
